FAERS Safety Report 8598746-7 (Version None)
Quarter: 2012Q3

REPORT INFORMATION
  Report Type: 
  Country: None (occurrence: None)
  Receive Date: 20120806
  Receipt Date: 20120806
  Transmission Date: 20120928
  Serious: Yes (Other)
  Sender: FDA-Public Use
  Company Number: None

PATIENT
  Sex: Female
  Weight: 82.7 kg

DRUGS (2)
  1. PEG-INTRON [Suspect]
     Dosage: PEG-INTRON Q WEEK SUBQ
     Route: 058
     Dates: start: 20120509
  2. RIBAVIRIN [Suspect]
     Indication: HEPATITIS C
     Dosage: RIBAVIRIN BID PO
     Route: 048
     Dates: start: 20120509

REACTIONS (2)
  - HALLUCINATION, VISUAL [None]
  - INSOMNIA [None]
